FAERS Safety Report 6248248-8 (Version None)
Quarter: 2009Q2

REPORT INFORMATION
  Report Type: 
  Country: None (occurrence: None)
  Receive Date: 20090625
  Receipt Date: 20090625
  Transmission Date: 20091009
  Serious: Yes (Hospitalization)
  Sender: FDA-Public Use
  Company Number: None

PATIENT
  Sex: Female
  Weight: 76.2 kg

DRUGS (2)
  1. GEMZAR [Suspect]
     Indication: PANCREATIC CARCINOMA
     Dosage: 1500 MG/M2 Q 2 WEEKS X3 IV
     Route: 042
     Dates: start: 20090521, end: 20090618
  2. AVASTIN [Suspect]
     Dosage: 10 MG 1KG Q 2 WEEKS X4 IV
     Route: 042
     Dates: start: 20090521, end: 20090618

REACTIONS (1)
  - DEEP VEIN THROMBOSIS [None]
